FAERS Safety Report 9265073 (Version 3)
Quarter: 2013Q3

REPORT INFORMATION
  Report Type: Spontaneous
  Country: JP (occurrence: JP)
  Receive Date: 20130501
  Receipt Date: 20130807
  Transmission Date: 20140515
  Serious: Yes (Hospitalization)
  Sender: FDA-Public Use
  Company Number: JP-ASTELLAS-2013JP005511

PATIENT
  Age: 80 Year
  Sex: Female
  Weight: 50 kg

DRUGS (5)
  1. VESICARE [Suspect]
     Indication: HYPERTONIC BLADDER
     Dosage: 5 MG, UID/QD
     Route: 048
     Dates: start: 20130201, end: 20130319
  2. LOCOL [Concomitant]
     Indication: HYPERLIPIDAEMIA
     Dosage: 30 MG, UID/QD
     Route: 048
     Dates: start: 20100817
  3. THEOPHYLLINE [Concomitant]
     Indication: ASTHMA
     Dosage: 100 MG, TID
     Route: 048
     Dates: start: 200110
  4. CLEANAL [Concomitant]
     Indication: ASTHMA
     Dosage: 200 MG, TID
     Route: 048
     Dates: start: 200110
  5. TSUKUSHI AM [Concomitant]
     Indication: GASTRITIS PROPHYLAXIS
     Dosage: 1.3 G, TID
     Route: 048
     Dates: start: 200110

REACTIONS (1)
  - Parkinsonism [Recovering/Resolving]
